FAERS Safety Report 22239657 (Version 2)
Quarter: 2023Q2

REPORT INFORMATION
  Report Type: Spontaneous
  Country: CN (occurrence: CN)
  Receive Date: 20230421
  Receipt Date: 20230504
  Transmission Date: 20230721
  Serious: Yes (Hospitalization)
  Sender: FDA-Public Use
  Company Number: CN-SEBELA IRELAND LIMITED-2023SEB00025

PATIENT
  Age: 32 Year
  Sex: Female

DRUGS (2)
  1. PAROXETINE [Suspect]
     Active Substance: PAROXETINE
     Indication: Depression
     Dosage: 40 MG, 1X/DAY
  2. PAROXETINE [Suspect]
     Active Substance: PAROXETINE
     Indication: Abnormal behaviour
     Dosage: 1000 MG, ONCE
     Dates: start: 201902

REACTIONS (5)
  - Acute lung injury [Recovered/Resolved]
  - Respiratory failure [Recovered/Resolved]
  - Overdose [Recovered/Resolved]
  - Pulmonary oedema [Recovered/Resolved]
  - Loss of consciousness [Recovered/Resolved]

NARRATIVE: CASE EVENT DATE: 20190201
